FAERS Safety Report 6361693-5 (Version None)
Quarter: 2009Q3

REPORT INFORMATION
  Report Type: 
  Country: None (occurrence: None)
  Receive Date: 20090821
  Receipt Date: 20090713
  Transmission Date: 20100115
  Serious: No
  Sender: FDA-Public Use
  Company Number: 8049158

PATIENT
  Sex: Male

DRUGS (2)
  1. CIMZIA [Suspect]
     Dosage: 400 MG SC
     Route: 058
     Dates: start: 20090130
  2. FERROUS GLUCONATE [Concomitant]

REACTIONS (2)
  - ABDOMINAL DISTENSION [None]
  - FLATULENCE [None]
